FAERS Safety Report 8180504-9 (Version None)
Quarter: 2012Q1

REPORT INFORMATION
  Report Type: 
  Country: None (occurrence: None)
  Receive Date: 20120302
  Receipt Date: 20120229
  Transmission Date: 20120608
  Serious: Yes (Life-Threatening, Hospitalization)
  Sender: FDA-Public Use
  Company Number: US-B.I. PHARMACEUTICALS,INC./RIDGEFIELD-2012-BP-02024BP

PATIENT
  Sex: Female

DRUGS (6)
  1. LISINOPRIL AND HYDROCHLOROTHIAZIDE [Concomitant]
  2. PRADAXA [Suspect]
     Indication: ATRIAL FIBRILLATION
     Dosage: 300 MG
     Route: 048
     Dates: start: 20110920, end: 20120130
  3. PLETAL [Concomitant]
     Dosage: 100 MG
  4. FUROSEMIDE [Concomitant]
     Dosage: 20 MG
  5. PROTONIX [Concomitant]
     Dosage: 40 MG
  6. PROPAFENONE HCL [Concomitant]
     Dosage: 450 MG

REACTIONS (5)
  - HAEMOGLOBIN DECREASED [None]
  - ASTHENIA [None]
  - MELAENA [None]
  - ABDOMINAL PAIN UPPER [None]
  - FATIGUE [None]
